FAERS Safety Report 8827836 (Version 2)
Quarter: 2012Q4

REPORT INFORMATION
  Report Type: 
  Country: PT (occurrence: PT)
  Receive Date: 20121008
  Receipt Date: 20121105
  Transmission Date: 20130627
  Serious: Yes (Hospitalization)
  Sender: FDA-Public Use
  Company Number: PT-JNJFOC-20121003684

PATIENT
  Age: 29 Year
  Sex: Male
  Weight: 60 kg

DRUGS (4)
  1. TRAMADOL [Suspect]
     Indication: PRODUCT USED FOR UNKNOWN INDICATION
     Dosage: once daily
     Route: 065
  2. DICLOFENAC [Suspect]
     Indication: PRODUCT USED FOR UNKNOWN INDICATION
     Dosage: twice daily
     Route: 065
  3. REMICADE [Concomitant]
     Indication: ANKYLOSING SPONDYLITIS
     Route: 042
     Dates: start: 20040517
  4. REMICADE [Concomitant]
     Indication: ANKYLOSING SPONDYLITIS
     Route: 042
     Dates: start: 20031009

REACTIONS (2)
  - Arthralgia [Unknown]
  - Drug resistance [Unknown]
